FAERS Safety Report 9242892 (Version 2)
Quarter: 2013Q2

REPORT INFORMATION
  Report Type: Spontaneous
  Country: US (occurrence: US)
  Receive Date: 20130419
  Receipt Date: 20130517
  Transmission Date: 20140414
  Serious: No
  Sender: FDA-Public Use
  Company Number: US-009507513-1304USA008329

PATIENT
  Age: 35 Year
  Sex: Female
  Weight: 85.71 kg

DRUGS (1)
  1. PEGINTRON [Suspect]
     Indication: HEPATITIS C
     Dosage: 150 MICROGRAM, QD
     Route: 058
     Dates: start: 20130305

REACTIONS (4)
  - Drug dose omission [Unknown]
  - Incorrect storage of drug [Unknown]
  - Product quality issue [Unknown]
  - No adverse event [Unknown]
